FAERS Safety Report 13800181 (Version 3)
Quarter: 2018Q4

REPORT INFORMATION
  Report Type: Spontaneous
  Country: US (occurrence: US)
  Receive Date: 20170727
  Receipt Date: 20181006
  Transmission Date: 20190204
  Serious: No
  Sender: FDA-Public Use
  Company Number: US-JNJFOC-20170625042

PATIENT
  Sex: Female

DRUGS (11)
  1. GLUCOSAMINE + CHONDROITIN [Concomitant]
     Active Substance: CHONDROITIN SULFATE (BOVINE)\GLUCOSAMINE HYDROCHLORIDE
     Indication: ARTHRALGIA
     Dosage: 25 YEARS.
     Route: 065
  2. SUPER B COMPLEX WITH VITAMIN C [Concomitant]
     Indication: IMMUNE SYSTEM DISORDER
     Dosage: TIME A DAY, 15 YEARS
     Route: 065
  3. MUCINEX [Concomitant]
     Active Substance: GUAIFENESIN
     Indication: MULTIPLE ALLERGIES
     Dosage: 4 YEARS.
     Route: 065
  4. WOMENS ROGAINE UNSCENTED [Suspect]
     Active Substance: MINOXIDIL
     Route: 061
  5. ALEGRA [Concomitant]
     Indication: MULTIPLE ALLERGIES
     Dosage: 4 YEARS
     Route: 065
  6. VITAMIN B2 [Concomitant]
     Active Substance: RIBOFLAVIN
     Indication: PRODUCT USED FOR UNKNOWN INDICATION
     Dosage: 1 YEARS
     Route: 065
  7. COQ10 [Concomitant]
     Active Substance: UBIDECARENONE
     Indication: CARDIAC DISORDER
     Dosage: 15 YEARS
     Route: 065
  8. VITAMINS C [Concomitant]
     Indication: ANTIVIRAL PROPHYLAXIS
     Dosage: 25 YEARS.
     Route: 065
  9. WOMENS ROGAINE UNSCENTED [Suspect]
     Active Substance: MINOXIDIL
     Indication: ALOPECIA
     Dosage: HALF A CAPFUL TO 3 QUARTERS.
     Route: 061
     Dates: start: 201602
  10. MUCINEX [Concomitant]
     Active Substance: GUAIFENESIN
     Indication: ANTIVIRAL PROPHYLAXIS
     Dosage: 4 YEARS.
     Route: 065
  11. LEVOTHYROXINE. [Concomitant]
     Active Substance: LEVOTHYROXINE
     Indication: THYROID DISORDER
     Route: 065

REACTIONS (3)
  - Overdose [Not Recovered/Not Resolved]
  - Therapeutic response decreased [Unknown]
  - Alopecia [Not Recovered/Not Resolved]
